FAERS Safety Report 16246112 (Version 2)
Quarter: 2019Q2

REPORT INFORMATION
  Report Type: Spontaneous
  Country: CA (occurrence: CA)
  Receive Date: 20190426
  Receipt Date: 20190515
  Transmission Date: 20190711
  Serious: Yes (Life-Threatening, Hospitalization, Other)
  Sender: FDA-Public Use
  Company Number: CA-GILEAD-2019-0404350

PATIENT
  Age: 64 Year
  Sex: Female
  Weight: 81.7 kg

DRUGS (10)
  1. GABAPENTINE [Concomitant]
     Active Substance: GABAPENTIN
  2. ALFACALCIDOL [Concomitant]
     Active Substance: ALFACALCIDOL
  3. CALCIUM CARBONATE. [Concomitant]
     Active Substance: CALCIUM CARBONATE
  4. DARBEPOETIN ALFA [Concomitant]
     Active Substance: DARBEPOETIN ALFA
  5. FUROSEMIDE. [Concomitant]
     Active Substance: FUROSEMIDE
  6. REPAGLINIDE. [Concomitant]
     Active Substance: REPAGLINIDE
  7. REPLAVITE [PYRIDOXINE HYDROCHLORIDE] [Concomitant]
  8. RIBAVIRIN. [Concomitant]
     Active Substance: RIBAVIRIN
  9. TRAZODONE [Concomitant]
     Active Substance: TRAZODONE HYDROCHLORIDE
  10. EPCLUSA [Suspect]
     Active Substance: SOFOSBUVIR\VELPATASVIR
     Indication: PRODUCT USED FOR UNKNOWN INDICATION
     Dosage: UNK
     Route: 065
     Dates: start: 20190225

REACTIONS (2)
  - Cerebrovascular accident [Not Recovered/Not Resolved]
  - Atrial fibrillation [Not Recovered/Not Resolved]

NARRATIVE: CASE EVENT DATE: 20190416
